FAERS Safety Report 21260448 (Version 1)
Quarter: 2022Q3

REPORT INFORMATION
  Report Type: Spontaneous
  Country: RU (occurrence: RU)
  Receive Date: 20220826
  Receipt Date: 20220826
  Transmission Date: 20221027
  Serious: Yes (Other)
  Sender: FDA-Public Use
  Company Number: RU-AMERICAN REGENT INC-2022002452

PATIENT
  Age: 32 Year
  Sex: Female
  Weight: 65 kg

DRUGS (1)
  1. FERINJECT [Suspect]
     Active Substance: FERRIC CARBOXYMALTOSE
     Indication: Iron deficiency anaemia
     Dosage: 10 ML DILUTED IN 200 ML NACL
     Dates: start: 202202, end: 202202

REACTIONS (2)
  - Maternal exposure during pregnancy [Unknown]
  - Anaphylactic shock [Recovered/Resolved]

NARRATIVE: CASE EVENT DATE: 20220201
